FAERS Safety Report 24909160 (Version 1)
Quarter: 2025Q1

REPORT INFORMATION
  Report Type: Report from Study
  Country: US (occurrence: US)
  Receive Date: 20250131
  Receipt Date: 20250131
  Transmission Date: 20250408
  Serious: Yes (Other)
  Sender: MYLAN
  Company Number: US-MYLANLABS-2025M1007108

PATIENT
  Sex: Male

DRUGS (1)
  1. TOBRAMYCIN [Suspect]
     Active Substance: TOBRAMYCIN
     Indication: Product used for unknown indication
     Route: 065

REACTIONS (4)
  - Bronchiectasis [Unknown]
  - Pseudomonas infection [Unknown]
  - Haemoptysis [Unknown]
  - Pathogen resistance [Unknown]

NARRATIVE: CASE EVENT DATE: 20240101
